FAERS Safety Report 8238588-5 (Version None)
Quarter: 2012Q1

REPORT INFORMATION
  Report Type: 
  Country: None (occurrence: None)
  Receive Date: 20120327
  Receipt Date: 20120320
  Transmission Date: 20120608
  Serious: Yes (Other)
  Sender: FDA-Public Use
  Company Number: US-PFIZER INC-2012073481

PATIENT
  Sex: Female

DRUGS (12)
  1. COZAAR [Concomitant]
     Dosage: 50 MG, 1X/DAY
     Route: 048
  2. SIMVASTATIN [Concomitant]
     Dosage: 40 MG, (1 TAB BY MOUTH AT BEDTIME)
     Route: 048
  3. NEXIUM [Concomitant]
     Dosage: 40 MG, 1X/DAY
     Route: 048
  4. STARLIX [Concomitant]
     Dosage: 180 MG, 3X/DAY
     Route: 048
  5. NITROGLYCERIN [Concomitant]
     Dosage: 0.4 MG, (DISSOLVE 1 TABLET UNDER THE TOUNGE MAY REPEAT EVERY 5 MINUTES. MAXIMUM 3 DOSES IN 15 MIN)
     Route: 060
  6. PLAVIX [Concomitant]
     Dosage: 75 MG, 1X/DAY
     Route: 048
  7. EVISTA [Concomitant]
     Dosage: 60 MG, 1X/DAY
     Route: 048
  8. XALATAN [Suspect]
     Dosage: (INSTILL 1 DROP TO AFFECTED EYE EACH EVENING)
     Route: 047
  9. XANAX [Suspect]
     Dosage: 0.25 MG, (QHS)
  10. CITALOPRAM HYDROBROMIDE [Concomitant]
     Dosage: 40 MG, 1X/DAY
     Route: 048
  11. LEVOTHROID [Concomitant]
     Dosage: 0.125 MG, 1X/DAY
     Route: 048
  12. LYRICA [Suspect]
     Dosage: 150 MG, 2X/DAY
     Route: 048

REACTIONS (4)
  - CEREBRAL ARTERY THROMBOSIS [None]
  - CEREBROVASCULAR ACCIDENT [None]
  - TYPE 2 DIABETES MELLITUS [None]
  - NEUROPATHY PERIPHERAL [None]
